FAERS Safety Report 6033424-X (Version None)
Quarter: 2009Q1

REPORT INFORMATION
  Report Type: 
  Country: None (occurrence: None)
  Receive Date: 20090109
  Receipt Date: 20081224
  Transmission Date: 20090719
  Serious: No
  Sender: FDA-Public Use
  Company Number: US-B.I. PHARMACEUTICALS,INC./RIDGEFIELD-2008-BP-18661BP

PATIENT
  Age: 70 Year
  Sex: Female
  Weight: 68 kg

DRUGS (3)
  1. SPIRIVA [Suspect]
     Dosage: 18MCG
     Dates: start: 20081001, end: 20081118
  2. FORADIL [Concomitant]
     Dates: start: 20081001, end: 20081118
  3. NASONEX [Concomitant]
     Dates: start: 20081001, end: 20081118

REACTIONS (1)
  - ORAL CANDIDIASIS [None]
